FAERS Safety Report 18597608 (Version 1)
Quarter: 2020Q4

REPORT INFORMATION
  Report Type: Spontaneous
  Country: DK (occurrence: DK)
  Receive Date: 20201210
  Receipt Date: 20201210
  Transmission Date: 20210114
  Serious: Yes (Death)
  Sender: FDA-Public Use
  Company Number: DK-ROCHE-2728611

PATIENT
  Age: 75 Year
  Sex: Male

DRUGS (2)
  1. METOMYLAN [Concomitant]
     Active Substance: METOPROLOL SUCCINATE
     Indication: HYPERTENSION
     Dosage: STRENGTH: 100MG
     Route: 048
     Dates: start: 20130221
  2. ACTILYSE [Suspect]
     Active Substance: ALTEPLASE
     Indication: CEREBROVASCULAR ACCIDENT
     Dosage: DOSAGE: BOLUS ACCORDING TO BODY WEIGHT
     Route: 040

REACTIONS (4)
  - Malaise [Fatal]
  - Dizziness [Fatal]
  - Hyporesponsive to stimuli [Fatal]
  - Cerebral haemorrhage [Fatal]

NARRATIVE: CASE EVENT DATE: 20201114
